FAERS Safety Report 19086813 (Version 1)
Quarter: 2021Q2

REPORT INFORMATION
  Report Type: Spontaneous
  Country: US (occurrence: US)
  Receive Date: 20210401
  Receipt Date: 20210401
  Transmission Date: 20210717
  Serious: Yes (Hospitalization)
  Sender: FDA-Public Use
  Company Number: None

PATIENT
  Age: 94 Year
  Sex: Male
  Weight: 132 kg

DRUGS (1)
  1. IBUPROFEN (IBUPROFEN 200MG TAB) [Suspect]
     Active Substance: IBUPROFEN
     Indication: PAIN
     Dosage: ?          OTHER DOSE:1 TAB;?
     Route: 048
     Dates: start: 20210103, end: 20210117

REACTIONS (11)
  - Melaena [None]
  - Gastric haemorrhage [None]
  - Diarrhoea [None]
  - Acute kidney injury [None]
  - Haematemesis [None]
  - Haemoglobin decreased [None]
  - Abdominal pain [None]
  - Nausea [None]
  - Gastric ulcer [None]
  - Diverticulitis [None]
  - Vomiting [None]

NARRATIVE: CASE EVENT DATE: 20210117
